FAERS Safety Report 6713792-3 (Version None)
Quarter: 2010Q2

REPORT INFORMATION
  Report Type: 
  Country: None (occurrence: None)
  Receive Date: 20100506
  Receipt Date: 20100429
  Transmission Date: 20101027
  Serious: Yes (Death)
  Sender: FDA-Public Use
  Company Number: GXKR2010NL04860

PATIENT
  Age: 49 Year
  Sex: Female

DRUGS (11)
  1. DEXAMETHASONE (NGX) [Suspect]
     Indication: MULTIPLE MYELOMA
  2. DOXORUBICIN (NGX) [Suspect]
     Indication: MULTIPLE MYELOMA
  3. VINCRISTINE (NGX) [Suspect]
     Indication: MULTIPLE MYELOMA
  4. IODINE [Concomitant]
     Indication: BASEDOW'S DISEASE
  5. LEVOTHYROXINE SODIUM [Concomitant]
     Indication: BASEDOW'S DISEASE
  6. BISPHOSPHONATES [Concomitant]
     Indication: HYPERCALCAEMIA
  7. OPIOIDS [Concomitant]
     Indication: PAIN
  8. FLUID/ELECTROLYTE REPLACEMENT THERAPY [Concomitant]
     Indication: HYPERCALCAEMIA
     Route: 042
  9. MORPHINE [Concomitant]
  10. PARACETAMOL [Concomitant]
  11. DIPYRONE [Concomitant]

REACTIONS (5)
  - ARTERIAL THROMBOSIS [None]
  - GASTROINTESTINAL NECROSIS [None]
  - INTESTINAL ISCHAEMIA [None]
  - MESENTERIC ARTERY STENOSIS [None]
  - THROMBOSIS [None]
